FAERS Safety Report 11410311 (Version 1)
Quarter: 2015Q3

REPORT INFORMATION
  Report Type: Spontaneous
  Country: US (occurrence: US)
  Receive Date: 20150824
  Receipt Date: 20150824
  Transmission Date: 20151125
  Serious: No
  Sender: FDA-Public Use
  Company Number: US-GLAXOSMITHKLINE-US2015119897

PATIENT
  Age: 55 Year
  Sex: Female

DRUGS (2)
  1. NICORETTE [Suspect]
     Active Substance: NICOTINE
     Indication: SMOKING CESSATION THERAPY
     Dosage: UNK
     Dates: start: 201503, end: 201505
  2. NICODERM CQ [Suspect]
     Active Substance: NICOTINE
     Indication: SMOKING CESSATION THERAPY
     Dosage: 14 MG, UNK
     Dates: start: 201501, end: 201503

REACTIONS (6)
  - Rash [Recovered/Resolved]
  - Application site rash [Recovered/Resolved]
  - Hypersensitivity [Recovered/Resolved]
  - Application site reaction [Recovered/Resolved]
  - Drug ineffective [Unknown]
  - Application site burn [Recovered/Resolved]
